FAERS Safety Report 5024560-5 (Version None)
Quarter: 2006Q2

REPORT INFORMATION
  Report Type: 
  Country: None (occurrence: None)
  Receive Date: 20060608
  Receipt Date: 20060608
  Transmission Date: 20061013
  Serious: Yes (Hospitalization)
  Sender: FDA-Public Use
  Company Number: None

PATIENT
  Age: 75 Year
  Sex: Male
  Weight: 70.7611 kg

DRUGS (9)
  1. WARFARIN SODIUM [Suspect]
     Indication: ATRIAL FIBRILLATION
     Dosage: 6 MG DAILY ORAL
     Route: 048
  2. ALBUTEROL [Concomitant]
  3. IPRATROPIUM INHALER [Concomitant]
  4. METOPROLOL TARTRATE [Concomitant]
  5. OMEGA-3-FATTY ACID [Concomitant]
  6. MULTI-VITAMIN [Concomitant]
  7. WARFARIN SODIUM [Concomitant]
  8. FUROSEMIDE [Concomitant]
  9. NIACIN [Concomitant]

REACTIONS (4)
  - CEREBRAL HAEMORRHAGE [None]
  - DIZZINESS [None]
  - HEMIPARESIS [None]
  - PARAESTHESIA [None]
